FAERS Safety Report 13398752 (Version 1)
Quarter: 2017Q2

REPORT INFORMATION
  Report Type: Spontaneous
  Country: US (occurrence: US)
  Receive Date: 20170403
  Receipt Date: 20170403
  Transmission Date: 20170830
  Serious: Yes (Other)
  Sender: FDA-Public Use
  Company Number: US-ELI_LILLY_AND_COMPANY-US201703011171

PATIENT
  Sex: Female

DRUGS (3)
  1. HUMALOG MIX75/25 [Suspect]
     Active Substance: INSULIN LISPRO
     Dosage: 50 U, EACH MORNING
     Route: 065
  2. HUMALOG MIX75/25 [Suspect]
     Active Substance: INSULIN LISPRO
     Dosage: 48 U, EACH EVENING
     Route: 065
  3. HUMALOG [Suspect]
     Active Substance: INSULIN LISPRO
     Indication: PRODUCT USED FOR UNKNOWN INDICATION
     Dosage: 6-9 U, PRN
     Route: 065

REACTIONS (9)
  - Ocular hyperaemia [Unknown]
  - Glaucoma [Not Recovered/Not Resolved]
  - Blood glucose increased [Unknown]
  - Incorrect product storage [Unknown]
  - Blood glucose abnormal [Unknown]
  - Visual impairment [Unknown]
  - Wrong drug administered [Unknown]
  - Blindness [Not Recovered/Not Resolved]
  - Incorrect dose administered [Unknown]
